FAERS Safety Report 20865750 (Version 1)
Quarter: 2022Q2

REPORT INFORMATION
  Report Type: Spontaneous
  Country: NL (occurrence: NL)
  Receive Date: 20220524
  Receipt Date: 20220524
  Transmission Date: 20220721
  Serious: Yes (Other)
  Sender: FDA-Public Use
  Company Number: NL-STRIDES ARCOLAB LIMITED-2022SP005896

PATIENT

DRUGS (2)
  1. DEXTROAMPHETAMINE [Suspect]
     Active Substance: DEXTROAMPHETAMINE
     Indication: Hypothalamo-pituitary disorder
     Dosage: 5 MILLIGRAM, DAILY
     Route: 065
  2. DEXTROAMPHETAMINE [Suspect]
     Active Substance: DEXTROAMPHETAMINE
     Indication: Obesity

REACTIONS (3)
  - Emotional disorder [Recovered/Resolved]
  - Decreased activity [Recovered/Resolved]
  - Off label use [Unknown]
